FAERS Safety Report 10441316 (Version 1)
Quarter: 2014Q3

REPORT INFORMATION
  Report Type: Spontaneous
  Country: US (occurrence: None)
  Receive Date: 20140908
  Receipt Date: 20140908
  Transmission Date: 20150326
  Serious: No
  Sender: FDA-Public Use
  Company Number: None

PATIENT
  Age: 89 Year
  Sex: Female
  Weight: 45.36 kg

DRUGS (3)
  1. LEVOFLOXACIN [Suspect]
     Active Substance: LEVOFLOXACIN
     Indication: SINUSITIS
     Dosage: 250 MG, 1 PILL, 1 DAILY FOR 10 DAYS, BY MOUTH
     Route: 048
     Dates: start: 20140421, end: 20140501
  2. VITAMIN B12 [Concomitant]
     Active Substance: CYANOCOBALAMIN
  3. LOW DOSE ASPIRIN [Concomitant]
     Active Substance: ASPIRIN

REACTIONS (6)
  - Burning sensation [None]
  - Muscular weakness [None]
  - Joint crepitation [None]
  - Arthralgia [None]
  - Joint swelling [None]
  - Muscle spasms [None]

NARRATIVE: CASE EVENT DATE: 20140709
